FAERS Safety Report 5004358-4 (Version None)
Quarter: 2006Q2

REPORT INFORMATION
  Report Type: 
  Country: None (occurrence: None)
  Receive Date: 20060517
  Receipt Date: 20060509
  Transmission Date: 20061013
  Serious: Yes (Other)
  Sender: FDA-Public Use
  Company Number: GB-GLAXOSMITHKLINE-B0423087A

PATIENT

DRUGS (1)
  1. AVANDIA [Suspect]
     Route: 065

REACTIONS (1)
  - JAUNDICE [None]
